FAERS Safety Report 17800751 (Version 1)
Quarter: 2020Q2

REPORT INFORMATION
  Report Type: Spontaneous
  Country: US (occurrence: US)
  Receive Date: 20200519
  Receipt Date: 20200519
  Transmission Date: 20200714
  Serious: No
  Sender: FDA-Public Use
  Company Number: US-LUPIN PHARMACEUTICALS INC.-2019-04888

PATIENT
  Age: 52 Year
  Sex: Female

DRUGS (10)
  1. CARBIDOPA AND LEVODOPA [Concomitant]
     Active Substance: CARBIDOPA\LEVODOPA
     Dosage: UNK UNK, QD (INCREASED DOSES OF CARBIDOPA/LEVODOPA, NOW 7-10 TABLETS DAILY)
     Route: 065
  2. ESCITALOPRAM [Concomitant]
     Active Substance: ESCITALOPRAM OXALATE
     Indication: ANXIETY
     Dosage: UNK
     Route: 065
  3. LEVODOPA [Concomitant]
     Active Substance: LEVODOPA
     Dosage: 800 MILLIGRAM, QD, DURATION 4.5 YEARS
     Route: 065
  4. CARBIDOPA AND LEVODOPA [Concomitant]
     Active Substance: CARBIDOPA\LEVODOPA
     Dosage: 2 DOSAGE FORM, QD (TWO CARBIDOPA/ LEVODOPA PER DAY)
     Route: 065
  5. CARBIDOPA AND LEVODOPA [Concomitant]
     Active Substance: CARBIDOPA\LEVODOPA
     Indication: PARKINSONISM
     Dosage: 3 DOSAGE FORM, QD (CARBIDOPA/LEVODOPA 25/100, 3 TABLETS DAILY)
     Route: 065
  6. QUETIAPINE. [Suspect]
     Active Substance: QUETIAPINE
     Indication: PSYCHOTIC DISORDER
     Dosage: 150 MILLIGRAM, QD
     Route: 065
  7. CLONAZEPAM. [Concomitant]
     Active Substance: CLONAZEPAM
     Indication: PRODUCT USED FOR UNKNOWN INDICATION
     Dosage: 1 MILLIGRAM, QD, AT BEDTIME
     Route: 065
  8. QUETIAPINE. [Suspect]
     Active Substance: QUETIAPINE
     Dosage: UNK
     Route: 065
  9. LEVODOPA [Concomitant]
     Active Substance: LEVODOPA
     Indication: PARKINSONISM
     Dosage: UNK, MUCH GREATER FREQUENCY
     Route: 065
  10. LEVODOPA [Concomitant]
     Active Substance: LEVODOPA
     Dosage: 500 MILLIGRAM, QD
     Route: 065

REACTIONS (1)
  - Somnolence [Recovered/Resolved]
